FAERS Safety Report 23292760 (Version 7)
Quarter: 2024Q2

REPORT INFORMATION
  Report Type: Report from Study
  Country: CA (occurrence: CA)
  Receive Date: 20231213
  Receipt Date: 20240528
  Transmission Date: 20240716
  Serious: Yes (Other)
  Sender: FDA-Public Use
  Company Number: CA-JNJFOC-20230971399

PATIENT
  Age: 9 Year
  Sex: Male
  Weight: 31 kg

DRUGS (6)
  1. REMICADE [Suspect]
     Active Substance: INFLIXIMAB
     Indication: Crohn^s disease
     Dosage: PHYSICIAN WAS PRESCRIBING 5 MG/KG ROUNDED UP TO THE FULL VIAL AT WEEKS 0, 2, 6 THEN EVERY 6 WEEKS.?O
     Route: 041
     Dates: start: 20231010
  2. REMICADE [Suspect]
     Active Substance: INFLIXIMAB
     Dosage: PHYSICIAN WAS PRESCRIBING 5 MG/KG ROUNDED UP TO THE FULL VIAL AT WEEKS 0, 2, 6 THEN EVERY 6 WEEKS.?O
     Route: 041
     Dates: start: 20231010
  3. REMICADE [Suspect]
     Active Substance: INFLIXIMAB
     Route: 041
     Dates: start: 20231220
  4. REMICADE [Suspect]
     Active Substance: INFLIXIMAB
     Route: 041
  5. REMICADE [Suspect]
     Active Substance: INFLIXIMAB
     Route: 041
     Dates: start: 20231010
  6. REMICADE [Suspect]
     Active Substance: INFLIXIMAB
     Route: 041

REACTIONS (5)
  - Crohn^s disease [Unknown]
  - Lower respiratory tract infection [Recovered/Resolved]
  - Ear infection [Recovered/Resolved]
  - Nasopharyngitis [Recovered/Resolved]
  - Off label use [Unknown]

NARRATIVE: CASE EVENT DATE: 20230101
